FAERS Safety Report 16470933 (Version 2)
Quarter: 2019Q3

REPORT INFORMATION
  Report Type: Spontaneous
  Country: US (occurrence: US)
  Receive Date: 20190624
  Receipt Date: 20190709
  Transmission Date: 20191004
  Serious: Yes (Other)
  Sender: FDA-Public Use
  Company Number: US-AKORN PHARMACEUTICALS-2019AKN01299

PATIENT
  Age: 29 Year
  Sex: Female
  Weight: 55.33 kg

DRUGS (4)
  1. TERBINAFINE. [Concomitant]
     Active Substance: TERBINAFINE
     Dosage: 250 MG, 1X/DAY
  2. MYORISAN [Suspect]
     Active Substance: ISOTRETINOIN
     Dosage: 30 MG, 1X/DAY
     Dates: start: 20190528, end: 20190610
  3. MELATONIN [Concomitant]
     Active Substance: MELATONIN
  4. MYORISAN [Suspect]
     Active Substance: ISOTRETINOIN
     Indication: ACNE
     Dosage: 30 MG, 2X/DAY
     Route: 048
     Dates: start: 20190507, end: 20190527

REACTIONS (6)
  - Mood swings [Recovering/Resolving]
  - Depression [Recovering/Resolving]
  - Off label use [Recovered/Resolved]
  - Decreased appetite [Recovering/Resolving]
  - Mood altered [Recovering/Resolving]
  - Nausea [Recovering/Resolving]

NARRATIVE: CASE EVENT DATE: 2019
